FAERS Safety Report 6390672-7 (Version None)
Quarter: 2009Q4

REPORT INFORMATION
  Report Type: 
  Country: None (occurrence: None)
  Receive Date: 20091006
  Receipt Date: 20090925
  Transmission Date: 20100525
  Serious: Yes (Other)
  Sender: FDA-Public Use
  Company Number: US-ELI_LILLY_AND_COMPANY-US200909006128

PATIENT
  Sex: Female

DRUGS (14)
  1. FORTEO [Suspect]
     Dates: start: 20090201
  2. METHOCARBAMOL [Concomitant]
     Indication: MUSCLE RELAXANT THERAPY
     Dosage: 750 MG, UNK
  3. SPIRONOLACTONE [Concomitant]
     Indication: CARDIAC DISORDER
     Dosage: 15 MG, UNK
  4. DOXYCYL [Concomitant]
     Indication: LUNG DISORDER
  5. FISH OIL [Concomitant]
     Dosage: 1000 MG, 3/D
  6. ADVAIR DISKUS 100/50 [Concomitant]
     Dosage: UNK, 2/D
  7. ASPIRIN [Concomitant]
     Dosage: 81 MG, UNK
  8. SIMVASTATIN [Concomitant]
     Indication: BLOOD CHOLESTEROL
  9. LEXAPRO [Concomitant]
     Dosage: 10 MG, UNK
  10. MECLIZINE [Concomitant]
     Indication: DIZZINESS
  11. DIOVAN [Concomitant]
  12. ALBUTEROL [Concomitant]
     Indication: DYSPNOEA
  13. PROAIR HFA [Concomitant]
     Indication: DYSPNOEA
     Dosage: UNK, AS NEEDED
     Route: 055
  14. OMEPRAZOLE [Concomitant]
     Indication: GASTROOESOPHAGEAL REFLUX DISEASE

REACTIONS (2)
  - GLAUCOMA [None]
  - SKIN CANCER [None]
